FAERS Safety Report 5782710-7 (Version None)
Quarter: 2008Q2

REPORT INFORMATION
  Report Type: 
  Country: None (occurrence: None)
  Receive Date: 20080619
  Receipt Date: 20080612
  Transmission Date: 20081010
  Serious: Yes (Hospitalization)
  Sender: FDA-Public Use
  Company Number: VNL_01111_2008

PATIENT
  Sex: Female

DRUGS (10)
  1. APOKYN [Suspect]
     Indication: PARKINSON'S DISEASE
     Dosage: (0.35 ML SUBCUTANEOUS), (0.3 ML TID SUBCUTANEOUS), (0.35 ML QD SUBCUTANEOUS), (0.35 ML TID SUBCUTANE
     Route: 058
     Dates: start: 20080301, end: 20080524
  2. APOKYN [Suspect]
     Indication: PARKINSON'S DISEASE
     Dosage: (0.35 ML SUBCUTANEOUS), (0.3 ML TID SUBCUTANEOUS), (0.35 ML QD SUBCUTANEOUS), (0.35 ML TID SUBCUTANE
     Route: 058
     Dates: start: 20080525, end: 20080525
  3. APOKYN [Suspect]
     Indication: PARKINSON'S DISEASE
     Dosage: (0.35 ML SUBCUTANEOUS), (0.3 ML TID SUBCUTANEOUS), (0.35 ML QD SUBCUTANEOUS), (0.35 ML TID SUBCUTANE
     Route: 058
     Dates: start: 20080101
  4. APOKYN [Suspect]
     Indication: PARKINSON'S DISEASE
     Dosage: (0.35 ML SUBCUTANEOUS), (0.3 ML TID SUBCUTANEOUS), (0.35 ML QD SUBCUTANEOUS), (0.35 ML TID SUBCUTANE
     Route: 058
     Dates: start: 20080526
  5. SINEMET [Concomitant]
  6. SINEMET CR [Concomitant]
  7. COMTAN [Concomitant]
  8. ATIVAN [Concomitant]
  9. AMBIEN [Concomitant]
  10. REMERON [Concomitant]

REACTIONS (6)
  - CONSCIOUSNESS FLUCTUATING [None]
  - DYSARTHRIA [None]
  - DYSKINESIA [None]
  - HYPOTENSION [None]
  - INCOHERENT [None]
  - VOMITING [None]
